FAERS Safety Report 6146650-6 (Version None)
Quarter: 2009Q2

REPORT INFORMATION
  Report Type: 
  Country: None (occurrence: None)
  Receive Date: 20090407
  Receipt Date: 20090406
  Transmission Date: 20091009
  Serious: Yes (Hospitalization, Other)
  Sender: FDA-Public Use
  Company Number: HN-ABBOTT-09R-074-0565322-00

PATIENT
  Sex: Male

DRUGS (1)
  1. BERACTANT [Suspect]
     Indication: NEONATAL RESPIRATORY DISTRESS SYNDROME
     Dosage: INJECTED INTO THE ENDOTRACHEAL TUBE
     Route: 050
     Dates: start: 20090115, end: 20090201

REACTIONS (6)
  - ATELECTASIS [None]
  - BRONCHOPULMONARY DYSPLASIA [None]
  - ENDOTRACHEAL INTUBATION COMPLICATION [None]
  - LUNG INFILTRATION [None]
  - NEONATAL RESPIRATORY DISTRESS SYNDROME [None]
  - PULMONARY HAEMORRHAGE [None]
